FAERS Safety Report 10444817 (Version 1)
Quarter: 2014Q3

REPORT INFORMATION
  Report Type: Report from Study
  Country: US (occurrence: US)
  Receive Date: 20140910
  Receipt Date: 20140910
  Transmission Date: 20150326
  Serious: Yes (Other)
  Sender: FDA-Public Use
  Company Number: US-TAKEDA-2014MPI002442

PATIENT
  Age: 81 Year
  Sex: Male

DRUGS (1)
  1. VELCADE [Suspect]
     Active Substance: BORTEZOMIB
     Indication: PLASMA CELL MYELOMA
     Dosage: 3 MG, WEEKLY X 3 THEN 1 WEEK OFF
     Route: 058
     Dates: start: 20130313, end: 20130905

REACTIONS (1)
  - Bone lesion [Unknown]

NARRATIVE: CASE EVENT DATE: 20130918
